FAERS Safety Report 6360668-X (Version None)
Quarter: 2009Q3

REPORT INFORMATION
  Report Type: 
  Country: None (occurrence: None)
  Receive Date: 20090918
  Receipt Date: 20090909
  Transmission Date: 20100115
  Serious: Yes (Life-Threatening)
  Sender: FDA-Public Use
  Company Number: BE-BIOGENIDEC-2009BI026814

PATIENT
  Age: 42 Year
  Sex: Female

DRUGS (16)
  1. TYSABRI [Suspect]
     Indication: RELAPSING-REMITTING MULTIPLE SCLEROSIS
     Route: 042
     Dates: start: 20081120, end: 20090703
  2. TYSABRI [Suspect]
     Route: 042
     Dates: start: 20090904
  3. MOBIC [Concomitant]
     Indication: PAIN
  4. NEURONTIN [Concomitant]
     Indication: NEURALGIA
     Dates: start: 20000101
  5. TAMSULOSIN HCL [Concomitant]
     Indication: URETHRAL PAIN
     Dates: start: 20070101
  6. TAMSULOSIN HCL [Concomitant]
     Indication: URETHRITIS NONINFECTIVE
     Dates: start: 20070101
  7. EMSELEX [Concomitant]
     Indication: MICTURITION URGENCY
     Dates: start: 20080101
  8. LIORESAL [Concomitant]
     Indication: MUSCLE SPASTICITY
     Dates: start: 20040101
  9. METHADONE HCL [Concomitant]
     Indication: BACK PAIN
     Dates: start: 20080101
  10. PARACETAMOL [Concomitant]
     Indication: MYALGIA
     Dates: start: 19990101
  11. PARACETAMOL [Concomitant]
     Indication: ARTHRALGIA
     Dates: start: 19990101
  12. TRAMADOL HCL [Concomitant]
     Indication: PAIN
     Dates: start: 20010101
  13. VASEXTEN [Concomitant]
     Indication: HYPERTENSION
     Dates: start: 20070101
  14. TRITACE [Concomitant]
     Indication: HYPERTENSION
     Dates: start: 20070101
  15. NULYTELY [Concomitant]
     Indication: CONSTIPATION
  16. NORDETTE-28 [Concomitant]
     Indication: CONTRACEPTION

REACTIONS (2)
  - HEPATITIS [None]
  - URINARY TRACT INFECTION [None]
